FAERS Safety Report 23628695 (Version 2)
Quarter: 2024Q1

REPORT INFORMATION
  Report Type: Report from Study
  Country: CA (occurrence: CA)
  Receive Date: 20240313
  Receipt Date: 20240322
  Transmission Date: 20240409
  Serious: Yes (Life-Threatening, Other)
  Sender: FDA-Public Use
  Company Number: CA-AstraZeneca-2024A026133

PATIENT
  Sex: Female
  Weight: 60 kg

DRUGS (2)
  1. ENHERTU [Suspect]
     Active Substance: FAM-TRASTUZUMAB DERUXTECAN-NXKI
     Indication: HER2 low breast cancer
     Dosage: 319 MG, ONCE EVERY 3 WK
     Route: 042
     Dates: start: 20231128
  2. ENHERTU [Suspect]
     Active Substance: FAM-TRASTUZUMAB DERUXTECAN-NXKI
     Dosage: 355 MG, ONCE EVERY 3 WK
     Route: 042
     Dates: start: 20231128

REACTIONS (4)
  - Vocal cord paralysis [Unknown]
  - Dyspnoea [Unknown]
  - Post procedural infection [Unknown]
  - Inappropriate schedule of product administration [Unknown]
